FAERS Safety Report 7274315-6 (Version None)
Quarter: 2011Q1

REPORT INFORMATION
  Report Type: 
  Country: None (occurrence: None)
  Receive Date: 20110131
  Receipt Date: 20110131
  Transmission Date: 20110831
  Serious: No
  Sender: FDA-Public Use
  Company Number: None

PATIENT
  Age: 69 Year
  Sex: Male

DRUGS (2)
  1. SULFAMETHOXAZOLE AND TRIMETHOPRIM [Suspect]
     Indication: LOCALISED INFECTION
     Dosage: 1 TAB BID PO
     Route: 048
     Dates: start: 20110107, end: 20110114
  2. AMOXICILLIN AND CLAVULANATE POTASSIUM [Suspect]
     Indication: LOCALISED INFECTION
     Dosage: 1 TAB BID PO
     Route: 048
     Dates: start: 20110107, end: 20110114

REACTIONS (1)
  - RASH [None]
